FAERS Safety Report 16704190 (Version 2)
Quarter: 2019Q4

REPORT INFORMATION
  Report Type: Report from Study
  Country: US (occurrence: US)
  Receive Date: 20190814
  Receipt Date: 20191001
  Transmission Date: 20200122
  Serious: Yes (Life-Threatening, Hospitalization)
  Sender: FDA-Public Use
  Company Number: US-GILEAD-2018-0351520

PATIENT
  Age: 74 Year
  Sex: Female
  Weight: 70.8 kg

DRUGS (40)
  1. FLUDARABINE [Suspect]
     Active Substance: FLUDARABINE PHOSPHATE
     Dosage: 38
     Route: 042
     Dates: start: 20180714, end: 20180714
  2. KEPPRA [Concomitant]
     Active Substance: LEVETIRACETAM
     Indication: PROPHYLAXIS
     Dosage: 500,MG,TWICE DAILY
     Route: 048
     Dates: start: 20180718, end: 20190718
  3. SENOKOT [Concomitant]
     Active Substance: SENNOSIDES
     Dosage: 17.2,MG,AS NECESSARY
     Route: 048
     Dates: start: 20180718, end: 20180801
  4. CYCLOPHOSPHAMIDE. [Suspect]
     Active Substance: CYCLOPHOSPHAMIDE
     Indication: BONE MARROW CONDITIONING REGIMEN
     Dosage: 940
     Route: 042
     Dates: start: 20180713, end: 20180713
  5. CYCLOPHOSPHAMIDE. [Suspect]
     Active Substance: CYCLOPHOSPHAMIDE
     Dosage: 940
     Route: 042
     Dates: start: 20180715, end: 20180715
  6. FLUDARABINE [Suspect]
     Active Substance: FLUDARABINE PHOSPHATE
     Dosage: 38
     Route: 042
     Dates: start: 20180715, end: 20180715
  7. OMNIPAQUE [Concomitant]
     Active Substance: IOHEXOL
  8. ZOFRAN [Concomitant]
     Active Substance: ONDANSETRON HYDROCHLORIDE
  9. CYCLOPHOSPHAMIDE. [Suspect]
     Active Substance: CYCLOPHOSPHAMIDE
     Dosage: 940
     Route: 042
     Dates: start: 20180714, end: 20180714
  10. PERIDEX [Concomitant]
     Active Substance: CHLORHEXIDINE GLUCONATE
  11. VITAMIN K [Concomitant]
     Active Substance: PHYTONADIONE
  12. TENORMIN [Concomitant]
     Active Substance: ATENOLOL
     Dosage: 12.5,MG,TWICE DAILY
     Route: 048
     Dates: start: 20150301
  13. CYANOCOBALAMIN. [Concomitant]
     Active Substance: CYANOCOBALAMIN
     Dosage: 1000,UG,DAILY
     Route: 048
     Dates: start: 20180803
  14. ASPIRIN [ACETYLSALICYLIC ACID] [Concomitant]
     Active Substance: ASPIRIN
     Dosage: 81,MG,DAILY
     Route: 048
     Dates: start: 20180301, end: 20180718
  15. ALLOPURINOL. [Concomitant]
     Active Substance: ALLOPURINOL
     Dosage: 300,MG,ONCE
     Route: 048
     Dates: start: 20180718, end: 20180730
  16. ZANTAC [Concomitant]
     Active Substance: RANITIDINE HYDROCHLORIDE
     Dosage: 150,MG,TWICE DAILY
     Route: 048
     Dates: start: 20180718, end: 20181003
  17. AXICABTAGENE CILOLEUCEL [Suspect]
     Active Substance: AXICABTAGENE CILOLEUCEL
     Indication: DIFFUSE LARGE B-CELL LYMPHOMA REFRACTORY
     Dosage: 68
     Route: 042
     Dates: start: 20180718, end: 20180718
  18. IMODIUM [Concomitant]
     Active Substance: LOPERAMIDE HYDROCHLORIDE
  19. COENZYME Q10 [Concomitant]
     Active Substance: UBIDECARENONE
     Dosage: 100,MG,DAILY
     Route: 048
     Dates: start: 20180803
  20. PEPCID [Concomitant]
     Active Substance: FAMOTIDINE
     Dosage: 20,MG,DAILY
     Route: 048
     Dates: start: 20150301, end: 20180718
  21. CYANOCOBALAMIN. [Concomitant]
     Active Substance: CYANOCOBALAMIN
     Dosage: 1000,UG,DAILY
     Route: 048
     Dates: start: 20160101, end: 20180718
  22. BENADRYL [Concomitant]
     Active Substance: DIPHENHYDRAMINE HYDROCHLORIDE
     Dosage: 25,MG,ONCE
     Route: 048
     Dates: start: 20180718, end: 20180718
  23. SENOKOT [Concomitant]
     Active Substance: SENNOSIDES
     Dosage: 8.6,MG,TWICE DAILY
     Route: 048
     Dates: start: 20180802
  24. CRYOPRECIPITATE [Concomitant]
     Active Substance: CRYOPRECIPITATED ANTIHEMOPHILIC FACTOR (HUMAN)
  25. COENZYME Q10 [Concomitant]
     Active Substance: UBIDECARENONE
     Dosage: 100,MG,DAILY
     Route: 048
     Dates: start: 20150301, end: 20180718
  26. COLACE [Concomitant]
     Active Substance: DOCUSATE SODIUM
     Dosage: 100,MG,DAILY
     Route: 048
     Dates: start: 20160101, end: 20180718
  27. BENADRYL [Concomitant]
     Active Substance: DIPHENHYDRAMINE HYDROCHLORIDE
     Dosage: 25,MG,ONCE
     Route: 042
     Dates: start: 20180727, end: 20180727
  28. ZYLOPRIM [Concomitant]
     Active Substance: ALLOPURINOL
  29. SYNTHROID [Concomitant]
     Active Substance: LEVOTHYROXINE SODIUM
     Dosage: 50,UG,DAILY
     Route: 048
     Dates: start: 20130101
  30. ACETAMINOPHEN. [Concomitant]
     Active Substance: ACETAMINOPHEN
     Dosage: 650,OTHER,TWICE DAILY
     Route: 048
     Dates: start: 20180718, end: 20180718
  31. PERIDEX [CHLORHEXIDINE GLUCONATE] [Concomitant]
     Dosage: 15,ML,THREE TIMES DAILY
     Route: 050
     Dates: start: 20180718, end: 20180802
  32. FLUDARABINE [Suspect]
     Active Substance: FLUDARABINE PHOSPHATE
     Indication: BONE MARROW CONDITIONING REGIMEN
     Dosage: 38
     Route: 042
     Dates: start: 20180713, end: 20180713
  33. DECADRON [Concomitant]
     Active Substance: DEXAMETHASONE
  34. PEPCID [Concomitant]
     Active Substance: FAMOTIDINE
  35. NYSTATIN. [Concomitant]
     Active Substance: NYSTATIN
  36. AMIODARONE [Concomitant]
     Active Substance: AMIODARONE
  37. ATORVASTATIN [Concomitant]
     Active Substance: ATORVASTATIN
     Dosage: 40,MG,DAILY
     Route: 048
     Dates: start: 20150301, end: 20180718
  38. ROXICODONE [Concomitant]
     Active Substance: OXYCODONE HYDROCHLORIDE
  39. COLACE [Concomitant]
     Active Substance: DOCUSATE SODIUM
     Dosage: 100,MG,DAILY
     Route: 048
     Dates: start: 20180803
  40. METOPROLOL TARTRATE. [Concomitant]
     Active Substance: METOPROLOL TARTRATE
     Dosage: 25,MG,TWICE DAILY
     Route: 048
     Dates: start: 20180718, end: 20180722

REACTIONS (5)
  - Tachypnoea [Recovered/Resolved]
  - Somnolence [Recovered/Resolved]
  - Sinus tachycardia [Recovered/Resolved]
  - Cytokine release syndrome [Recovered/Resolved]
  - Acute respiratory failure [Recovered/Resolved]

NARRATIVE: CASE EVENT DATE: 20180719
